FAERS Safety Report 17998611 (Version 1)
Quarter: 2020Q3

REPORT INFORMATION
  Report Type: Spontaneous
  Country: US (occurrence: US)
  Receive Date: 20200709
  Receipt Date: 20200709
  Transmission Date: 20201103
  Serious: No
  Sender: FDA-Public Use
  Company Number: US-GLENMARK PHARMACEUTICALS-2019GMK041629

PATIENT

DRUGS (2)
  1. MOMETASONE FUROATE CREAM USP, 0.1% [Suspect]
     Active Substance: MOMETASONE FUROATE
     Dosage: UNK
     Route: 048
     Dates: start: 20190605
  2. MOMETASONE FUROATE CREAM USP, 0.1% [Suspect]
     Active Substance: MOMETASONE FUROATE
     Indication: RASH
     Dosage: UNK, BID
     Route: 061
     Dates: start: 20190513

REACTIONS (3)
  - Product selection error [Unknown]
  - Drug ineffective [Unknown]
  - Accidental exposure to product [Unknown]

NARRATIVE: CASE EVENT DATE: 20190605
